FAERS Safety Report 16692361 (Version 3)
Quarter: 2019Q3

REPORT INFORMATION
  Report Type: Spontaneous
  Country: US (occurrence: US)
  Receive Date: 20190812
  Receipt Date: 20190912
  Transmission Date: 20191004
  Serious: No
  Sender: FDA-Public Use
  Company Number: US-PFIZER INC-2019340034

PATIENT
  Age: 74 Year
  Sex: Female

DRUGS (1)
  1. HYDROCHLOROTHIAZIDE/SPIRONOLACTONE [Suspect]
     Active Substance: HYDROCHLOROTHIAZIDE\SPIRONOLACTONE
     Indication: PERIPHERAL SWELLING
     Dosage: UNK
     Dates: start: 201907

REACTIONS (7)
  - Abdominal pain upper [Unknown]
  - Malaise [Unknown]
  - Back pain [Unknown]
  - Pain in extremity [Unknown]
  - Blood lactic acid increased [Unknown]
  - Pain [Unknown]
  - Burning sensation [Unknown]
